FAERS Safety Report 8786726 (Version 1)
Quarter: 2012Q4

REPORT INFORMATION
  Report Type: 
  Country: US (occurrence: US)
  Receive Date: 20120914
  Receipt Date: 20120914
  Transmission Date: 20130627
  Serious: Yes (Death, Other)
  Sender: FDA-Public Use
  Company Number: US-ROCHE-1097846

PATIENT
  Sex: Female

DRUGS (3)
  1. TARCEVA [Suspect]
     Indication: TRACHEAL CANCER
     Route: 065
  2. TARCEVA [Suspect]
     Indication: LUNG NEOPLASM MALIGNANT
  3. AVASTIN [Suspect]
     Indication: PRODUCT USED FOR UNKNOWN INDICATION
     Route: 065

REACTIONS (13)
  - Death [Fatal]
  - Disease progression [Unknown]
  - Decreased appetite [Unknown]
  - Dyspepsia [Recovered/Resolved]
  - Headache [Unknown]
  - Nausea [Unknown]
  - Epistaxis [Unknown]
  - Gastritis [Unknown]
  - Fatigue [Unknown]
  - Dyspepsia [Unknown]
  - Ear pruritus [Unknown]
  - Pain of skin [Unknown]
  - Weight decreased [Unknown]
